FAERS Safety Report 7399848-3 (Version None)
Quarter: 2011Q2

REPORT INFORMATION
  Report Type: 
  Country: None (occurrence: None)
  Receive Date: 20110407
  Receipt Date: 20110405
  Transmission Date: 20111010
  Serious: Yes (Other)
  Sender: FDA-Public Use
  Company Number: JP-PFIZER INC-2011075438

PATIENT
  Age: 75 Year
  Sex: Female

DRUGS (1)
  1. AZULFIDINE [Suspect]
     Dosage: UNK
     Dates: start: 20091001

REACTIONS (2)
  - PROTEINURIA [None]
  - FACE OEDEMA [None]
